FAERS Safety Report 4484757-X (Version None)
Quarter: 2004Q4

REPORT INFORMATION
  Report Type: 
  Country: None (occurrence: None)
  Receive Date: 20041025
  Receipt Date: 20041018
  Transmission Date: 20050328
  Serious: Yes (Other)
  Sender: FDA-Public Use
  Company Number: DE-MERCK-0410DEU00515

PATIENT
  Age: 74 Year
  Sex: Male

DRUGS (1)
  1. VIOXX [Suspect]
     Indication: OSTEOARTHRITIS
     Route: 048
     Dates: start: 20020101, end: 20040101

REACTIONS (5)
  - BLOOD PRESSURE INCREASED [None]
  - CAROTID ARTERY STENOSIS [None]
  - CEREBROVASCULAR ACCIDENT [None]
  - DIZZINESS [None]
  - THROMBOSIS [None]
